FAERS Safety Report 18025678 (Version 2)
Quarter: 2022Q4

REPORT INFORMATION
  Report Type: Report from Study
  Country: FR (occurrence: FR)
  Receive Date: 20200715
  Receipt Date: 20221209
  Transmission Date: 20230113
  Serious: Yes (Death)
  Sender: FDA-Public Use
  Company Number: FR-BAXTER-2020BAX014383

PATIENT
  Age: 72 Year
  Sex: Male

DRUGS (3)
  1. DOXORUBICIN HYDROCHLORIDE [Suspect]
     Active Substance: DOXORUBICIN HYDROCHLORIDE
     Indication: Plasma cell myeloma
     Dosage: 30 MG/M2/DOSE 1 DOSE(S)/WEEK 1 WEEK(S)/CYCLE, TREATMENT LINE NUMBER 5, DURATION: 0.9 MONTHS
     Route: 065
     Dates: end: 20180702
  2. VELCADE [Suspect]
     Active Substance: BORTEZOMIB
     Indication: Plasma cell myeloma
     Dosage: 2.5 MG/DOSE 2 DOSE(S)/WEEK 2 WEEK(S)/CYCLE, TREATMENT LINE NUMBER 5, DURATION: 0.9 MONTHS
     Route: 065
     Dates: end: 20180702
  3. DEXAMETHASONE [Suspect]
     Active Substance: DEXAMETHASONE
     Indication: Plasma cell myeloma
     Dosage: 20 MG/DOSE 2 DOSE(S)/WEEK 2 WEEK(S)/CYCLE, TREATMENT LINE NUMBER 5, DURATION: 0.9 MONTHS
     Route: 065
     Dates: end: 20180702

REACTIONS (1)
  - General physical health deterioration [Fatal]
